FAERS Safety Report 4370306-3 (Version None)
Quarter: 2004Q2

REPORT INFORMATION
  Report Type: 
  Country: None (occurrence: None)
  Receive Date: 20040603
  Receipt Date: 20040305
  Transmission Date: 20050107
  Serious: No
  Sender: FDA-Public Use
  Company Number: US-BRISTOL-MYERS SQUIBB COMPANY-12526489

PATIENT
  Age: 43 Year
  Sex: Female
  Weight: 60 kg

DRUGS (7)
  1. ABILIFY [Suspect]
     Route: 048
     Dates: start: 20031110
  2. CELEXA [Concomitant]
  3. LIPITOR [Concomitant]
  4. OS-CAL [Concomitant]
  5. GLUCOPHAGE [Concomitant]
  6. ASPIRIN [Concomitant]
  7. MONOPRIL [Concomitant]

REACTIONS (1)
  - DYSTONIA [None]
